FAERS Safety Report 24552687 (Version 1)
Quarter: 2024Q4

REPORT INFORMATION
  Report Type: Spontaneous
  Country: FR (occurrence: FR)
  Receive Date: 20241027
  Receipt Date: 20241027
  Transmission Date: 20250115
  Serious: Yes (Hospitalization, Other)
  Sender: AUROBINDO
  Company Number: FR-EMA-20141224-pdevhumanwt-161244039

PATIENT
  Age: 53 Year
  Sex: Female

DRUGS (23)
  1. MYCOPHENOLATE MOFETIL [Suspect]
     Active Substance: MYCOPHENOLATE MOFETIL
     Indication: Liver transplant
     Dosage: UNK
     Route: 065
  2. COPEGUS [Suspect]
     Active Substance: RIBAVIRIN
     Indication: Hepatitis C
     Dosage: 400 MILLIGRAM, ONCE A DAY
     Route: 065
  3. COPEGUS [Suspect]
     Active Substance: RIBAVIRIN
     Dosage: 600 MILLIGRAM, ONCE A DAY
     Route: 065
  4. ERYTHROPOIETIN [Suspect]
     Active Substance: ERYTHROPOIETIN
     Indication: Anaemia
     Dosage: UNK
     Route: 065
  5. CYCLOSPORINE [Suspect]
     Active Substance: CYCLOSPORINE
     Indication: Liver transplant
     Dosage: UNK
     Route: 065
  6. TELAPREVIR [Suspect]
     Active Substance: TELAPREVIR
     Indication: Hepatitis C
     Dosage: 2250 MILLIGRAM, ONCE A DAY (DISCONTINUED AT WEEK 12)
     Route: 048
  7. VIRAFERON [Suspect]
     Active Substance: INTERFERON ALFA-2B
     Indication: Hepatitis C
     Dosage: 1.5 MICROGRAM/KILOGRAM, EVERY WEEK
     Route: 065
  8. VIRAFERON [Suspect]
     Active Substance: INTERFERON ALFA-2B
     Dosage: 45 MICROGRAM, EVERY WEEK
     Route: 065
  9. VIRAFERON [Suspect]
     Active Substance: INTERFERON ALFA-2B
     Dosage: 135 MICROGRAM, EVERY WEEK
     Route: 065
  10. VIRAFERON [Suspect]
     Active Substance: INTERFERON ALFA-2B
     Dosage: 135 MICROGRAM, ONCE A DAY
     Route: 065
  11. PROGRAF [Interacting]
     Active Substance: TACROLIMUS
     Indication: Immunosuppressant drug therapy
     Dosage: 5 MILLIGRAM, ONCE A DAY
     Route: 065
  12. PROGRAF [Interacting]
     Active Substance: TACROLIMUS
     Dosage: 1 MILLIGRAM, ONCE A DAY
     Route: 065
  13. PROGRAF [Interacting]
     Active Substance: TACROLIMUS
     Dosage: 5 AND 10 NG/ML
     Route: 065
  14. PROGRAF [Interacting]
     Active Substance: TACROLIMUS
     Dosage: 0.5 MILLIGRAM
     Route: 065
  15. TACROLIMUS [Interacting]
     Active Substance: TACROLIMUS
     Indication: Liver transplant
     Dosage: 5 MILLIGRAM, ONCE A DAY
     Route: 065
  16. TACROLIMUS [Interacting]
     Active Substance: TACROLIMUS
     Indication: Liver transplant
     Dosage: 1 MILLIGRAM, ONCE A DAY
     Route: 065
  17. TACROLIMUS [Interacting]
     Active Substance: TACROLIMUS
     Indication: Product used for unknown indication
     Dosage: 0.2 MILLIGRAM (FORM REPORTED AS GRANULE)
     Route: 065
  18. LAMIVUDINE [Concomitant]
     Active Substance: LAMIVUDINE
     Indication: HIV infection
     Dosage: 300 MILLIGRAM, ONCE A DAY
     Route: 065
  19. DARUNAVIR [Concomitant]
     Active Substance: DARUNAVIR
     Indication: HIV infection
     Dosage: 800 MILLIGRAM, ONCE A DAY
     Route: 065
  20. RITONAVIR [Concomitant]
     Active Substance: RITONAVIR
     Indication: HIV infection
     Dosage: 100 MILLIGRAM, ONCE A DAY
     Route: 065
  21. TENOFOVIR [Concomitant]
     Active Substance: TENOFOVIR
     Indication: HIV infection
     Dosage: 300 MILLIGRAM, ONCE A DAY
     Route: 065
  22. RALTEGRAVIR [Concomitant]
     Active Substance: RALTEGRAVIR
     Indication: HIV infection
     Dosage: 800 MILLIGRAM, ONCE A DAY ( REINTRODUCED AT DAY 14 OF LIVER TRANSPLANTATION)
     Route: 065
  23. ABACAVIR [Concomitant]
     Active Substance: ABACAVIR
     Indication: HIV infection
     Dosage: 600 MILLIGRAM, ONCE A DAY
     Route: 065

REACTIONS (9)
  - Hypertrichosis [Unknown]
  - Gingival hypertrophy [Unknown]
  - Neutropenia [Recovered/Resolved]
  - Hepatitis cholestatic [Recovered/Resolved]
  - Anaemia [Recovered/Resolved]
  - Thrombocytopenia [Recovered/Resolved]
  - Hepatitis C [Recovered/Resolved]
  - Off label use [Unknown]
  - Drug interaction [Recovered/Resolved]
